FAERS Safety Report 25753532 (Version 5)
Quarter: 2025Q4

REPORT INFORMATION
  Report Type: Spontaneous
  Country: US (occurrence: US)
  Receive Date: 20250903
  Receipt Date: 20251216
  Transmission Date: 20260118
  Serious: No
  Sender: LUPIN
  Company Number: US-LUPIN PHARMACEUTICALS INC.-2025-07669

PATIENT
  Age: 27 Year

DRUGS (7)
  1. TOLVAPTAN [Suspect]
     Active Substance: TOLVAPTAN
     Indication: Congenital cystic kidney disease
     Dosage: UNK
     Route: 065
  2. TOLVAPTAN [Suspect]
     Active Substance: TOLVAPTAN
     Dosage: UNK
     Route: 065
  3. TOLVAPTAN [Suspect]
     Active Substance: TOLVAPTAN
     Dosage: UNK
     Route: 065
  4. TOLVAPTAN [Suspect]
     Active Substance: TOLVAPTAN
     Indication: Congenital cystic kidney disease
     Dosage: UNK
     Route: 065
  5. TOLVAPTAN [Suspect]
     Active Substance: TOLVAPTAN
     Dosage: UNK
     Route: 065
  6. TOLVAPTAN [Suspect]
     Active Substance: TOLVAPTAN
     Dosage: UNK
     Route: 065
  7. LISINOPRIL [Concomitant]
     Active Substance: LISINOPRIL
     Indication: Blood pressure abnormal
     Dosage: 40 MG
     Route: 065

REACTIONS (2)
  - Blood pressure decreased [Unknown]
  - Product use issue [Unknown]
